FAERS Safety Report 7957712-2 (Version None)
Quarter: 2011Q4

REPORT INFORMATION
  Report Type: 
  Country: None (occurrence: None)
  Receive Date: 20111205
  Receipt Date: 20111129
  Transmission Date: 20120403
  Serious: Yes (Death, Hospitalization)
  Sender: FDA-Public Use
  Company Number: PHHY2011FR105002

PATIENT
  Sex: Male

DRUGS (11)
  1. SERTRALINE [Concomitant]
     Dosage: 50 MG, QD
  2. AFINITOR [Suspect]
     Indication: RENAL CANCER
     Dates: start: 20110301, end: 20110407
  3. MONICOR L.P. [Concomitant]
     Indication: CARDIAC FAILURE
     Dosage: 20 MG, QD
  4. PREVISCAN [Concomitant]
     Indication: CARDIOVASCULAR DISORDER
     Dosage: 0.75 DF, QD
  5. LEXOMIL [Concomitant]
     Dosage: 0.25 DF, UNK
  6. UN-ALFA [Concomitant]
     Dosage: 1 DF, QD
  7. ALFUZOSIN HCL [Concomitant]
     Dosage: 1 DF, UNK
  8. AMIODARONE HCL [Suspect]
     Dosage: 100 MG, DAILY
  9. ESOMEPRAZOLE [Concomitant]
     Dosage: 1 DF, QD
  10. OXAZEPAM [Concomitant]
     Dosage: 1.5 DF, QD
  11. POTASSIUM CHLORIDE [Concomitant]
     Dosage: 1 DF, UNK
     Route: 048

REACTIONS (12)
  - LUNG DISORDER [None]
  - RALES [None]
  - CARDIAC FAILURE [None]
  - OEDEMA PERIPHERAL [None]
  - GENERAL PHYSICAL HEALTH DETERIORATION [None]
  - HYPOXIA [None]
  - NEOPLASM MALIGNANT [None]
  - INTERSTITIAL LUNG DISEASE [None]
  - NEOPLASM PROGRESSION [None]
  - ASTHENIA [None]
  - DYSPNOEA [None]
  - NODULE [None]
